FAERS Safety Report 4822332-5 (Version None)
Quarter: 2005Q4

REPORT INFORMATION
  Report Type: 
  Country: None (occurrence: None)
  Receive Date: 20051103
  Receipt Date: 20051011
  Transmission Date: 20060501
  Serious: Yes (Other)
  Sender: FDA-Public Use
  Company Number: 0510-545

PATIENT
  Age: 97 Year
  Sex: Female

DRUGS (1)
  1. ALBUTEROL SULFATE AUTOHALER [Suspect]

REACTIONS (4)
  - BURNING SENSATION [None]
  - GLOSSODYNIA [None]
  - LIP EXFOLIATION [None]
  - ORAL DISCOMFORT [None]
